FAERS Safety Report 25144610 (Version 5)
Quarter: 2025Q3

REPORT INFORMATION
  Report Type: Spontaneous
  Country: CA (occurrence: CA)
  Receive Date: 20250401
  Receipt Date: 20250709
  Transmission Date: 20251020
  Serious: Yes (Death, Life-Threatening, Hospitalization, Disabling, Other)
  Sender: SANDOZ
  Company Number: CA-002147023-NVSC2025CA042013

PATIENT
  Age: 43 Year
  Sex: Female
  Weight: 96 kg

DRUGS (439)
  1. ADALIMUMAB [Suspect]
     Active Substance: ADALIMUMAB
     Route: 058
  2. ADALIMUMAB [Suspect]
     Active Substance: ADALIMUMAB
     Dosage: 40 MG, QW
     Route: 058
  3. ADALIMUMAB [Suspect]
     Active Substance: ADALIMUMAB
     Dosage: 40 MG, Q2W (1 EVERY 2 WEEKS)
     Route: 058
  4. ADALIMUMAB [Suspect]
     Active Substance: ADALIMUMAB
     Route: 048
  5. ADALIMUMAB [Suspect]
     Active Substance: ADALIMUMAB
     Indication: Psoriatic arthropathy
     Route: 058
  6. ADALIMUMAB [Suspect]
     Active Substance: ADALIMUMAB
     Indication: Rheumatoid arthritis
     Route: 058
  7. ADALIMUMAB [Suspect]
     Active Substance: ADALIMUMAB
     Route: 058
  8. ADALIMUMAB [Suspect]
     Active Substance: ADALIMUMAB
     Route: 065
  9. ADALIMUMAB [Suspect]
     Active Substance: ADALIMUMAB
     Route: 058
  10. ADALIMUMAB [Suspect]
     Active Substance: ADALIMUMAB
     Route: 065
  11. ADALIMUMAB [Suspect]
     Active Substance: ADALIMUMAB
     Route: 058
  12. ACETAMINOPHEN\PROPOXYPHENE HYDROCHLORIDE [Suspect]
     Active Substance: ACETAMINOPHEN\PROPOXYPHENE HYDROCHLORIDE
     Indication: Product used for unknown indication
     Route: 065
  13. ACTEMRA [Suspect]
     Active Substance: TOCILIZUMAB
     Route: 048
  14. ACTEMRA [Suspect]
     Active Substance: TOCILIZUMAB
     Route: 048
  15. ACTEMRA [Suspect]
     Active Substance: TOCILIZUMAB
     Route: 065
  16. ACTEMRA [Suspect]
     Active Substance: TOCILIZUMAB
     Indication: Product used for unknown indication
     Route: 065
  17. ACTEMRA [Suspect]
     Active Substance: TOCILIZUMAB
     Route: 065
  18. ACTEMRA [Suspect]
     Active Substance: TOCILIZUMAB
     Route: 042
  19. ACTEMRA [Suspect]
     Active Substance: TOCILIZUMAB
     Route: 042
  20. ACTEMRA [Suspect]
     Active Substance: TOCILIZUMAB
     Route: 042
  21. ACTEMRA [Suspect]
     Active Substance: TOCILIZUMAB
     Route: 042
  22. ACTEMRA [Suspect]
     Active Substance: TOCILIZUMAB
     Route: 065
  23. ACTEMRA [Suspect]
     Active Substance: TOCILIZUMAB
     Route: 042
  24. ACTEMRA [Suspect]
     Active Substance: TOCILIZUMAB
     Route: 042
  25. ACTEMRA [Suspect]
     Active Substance: TOCILIZUMAB
     Route: 048
  26. ACTEMRA [Suspect]
     Active Substance: TOCILIZUMAB
     Route: 058
  27. ACTEMRA [Suspect]
     Active Substance: TOCILIZUMAB
     Route: 058
  28. ACTEMRA [Suspect]
     Active Substance: TOCILIZUMAB
     Route: 058
  29. ACTEMRA [Suspect]
     Active Substance: TOCILIZUMAB
     Route: 058
  30. ACTEMRA [Suspect]
     Active Substance: TOCILIZUMAB
     Route: 061
  31. ACTEMRA [Suspect]
     Active Substance: TOCILIZUMAB
     Route: 065
  32. ACTEMRA [Suspect]
     Active Substance: TOCILIZUMAB
     Route: 065
  33. ACTEMRA [Suspect]
     Active Substance: TOCILIZUMAB
     Route: 065
  34. ACTEMRA [Suspect]
     Active Substance: TOCILIZUMAB
     Route: 065
  35. AIMOVIG [Suspect]
     Active Substance: ERENUMAB-AOOE
     Indication: Migraine
     Route: 065
  36. AIMOVIG [Suspect]
     Active Substance: ERENUMAB-AOOE
     Indication: Rheumatoid arthritis
     Route: 065
  37. ANAKINRA [Suspect]
     Active Substance: ANAKINRA
     Dosage: 100 MG, QD
     Route: 065
  38. ANAKINRA [Suspect]
     Active Substance: ANAKINRA
     Indication: Rheumatoid arthritis
     Dosage: 50 MG, QD
     Route: 065
  39. LEFLUNOMIDE [Suspect]
     Active Substance: LEFLUNOMIDE
     Dosage: 20 MG, QD
     Route: 065
  40. LEFLUNOMIDE [Suspect]
     Active Substance: LEFLUNOMIDE
     Route: 065
  41. LEFLUNOMIDE [Suspect]
     Active Substance: LEFLUNOMIDE
     Indication: Rheumatoid arthritis
     Route: 048
  42. LEFLUNOMIDE [Suspect]
     Active Substance: LEFLUNOMIDE
     Route: 065
  43. APREMILAST [Suspect]
     Active Substance: APREMILAST
     Indication: Product used for unknown indication
     Route: 065
  44. ARAVA [Suspect]
     Active Substance: LEFLUNOMIDE
     Dosage: 20 MG, QD
     Route: 048
  45. ARAVA [Suspect]
     Active Substance: LEFLUNOMIDE
     Indication: Rheumatoid arthritis
     Dosage: 20 MG, QD
     Route: 065
  46. ARAVA [Suspect]
     Active Substance: LEFLUNOMIDE
     Route: 048
  47. ARAVA [Suspect]
     Active Substance: LEFLUNOMIDE
     Route: 048
  48. ARAVA [Suspect]
     Active Substance: LEFLUNOMIDE
     Route: 065
  49. ARAVA [Suspect]
     Active Substance: LEFLUNOMIDE
     Route: 065
  50. ARAVA [Suspect]
     Active Substance: LEFLUNOMIDE
     Route: 065
  51. CELECOXIB [Suspect]
     Active Substance: CELECOXIB
     Indication: Product used for unknown indication
     Dosage: 1 DF, QD
     Route: 048
  52. CELECOXIB [Suspect]
     Active Substance: CELECOXIB
     Dosage: 2 DF, QD
     Route: 048
  53. CELECOXIB [Suspect]
     Active Substance: CELECOXIB
     Route: 048
  54. CALCIUM CHLORIDE [Suspect]
     Active Substance: CALCIUM CHLORIDE
     Indication: Product used for unknown indication
     Route: 065
  55. CALCIUM GLUCONATE [Suspect]
     Active Substance: CALCIUM GLUCONATE
     Indication: Product used for unknown indication
     Route: 065
  56. CALCIUM GLUCONATE [Suspect]
     Active Substance: CALCIUM GLUCONATE
     Route: 065
  57. CERTOLIZUMAB PEGOL [Suspect]
     Active Substance: CERTOLIZUMAB PEGOL
     Indication: Arthritis
     Route: 058
  58. CERTOLIZUMAB PEGOL [Suspect]
     Active Substance: CERTOLIZUMAB PEGOL
     Indication: Rheumatoid arthritis
     Route: 065
  59. CETIRIZINE [Suspect]
     Active Substance: CETIRIZINE HYDROCHLORIDE
     Route: 048
  60. CETIRIZINE [Suspect]
     Active Substance: CETIRIZINE HYDROCHLORIDE
     Indication: Rheumatoid arthritis
     Route: 065
  61. CETIRIZINE [Suspect]
     Active Substance: CETIRIZINE HYDROCHLORIDE
     Route: 065
  62. CETIRIZINE HYDROCHLORIDE [Suspect]
     Active Substance: CETIRIZINE HYDROCHLORIDE
     Dosage: 10 MG, Q24H
     Route: 048
  63. CETIRIZINE HYDROCHLORIDE [Suspect]
     Active Substance: CETIRIZINE HYDROCHLORIDE
     Route: 016
  64. CETIRIZINE HYDROCHLORIDE [Suspect]
     Active Substance: CETIRIZINE HYDROCHLORIDE
     Route: 048
  65. CETIRIZINE HYDROCHLORIDE [Suspect]
     Active Substance: CETIRIZINE HYDROCHLORIDE
     Route: 065
  66. CETIRIZINE HYDROCHLORIDE [Suspect]
     Active Substance: CETIRIZINE HYDROCHLORIDE
     Route: 065
  67. CETIRIZINE HYDROCHLORIDE [Suspect]
     Active Substance: CETIRIZINE HYDROCHLORIDE
     Route: 065
  68. CETIRIZINE HYDROCHLORIDE [Suspect]
     Active Substance: CETIRIZINE HYDROCHLORIDE
     Route: 005
  69. CETIRIZINE HYDROCHLORIDE [Suspect]
     Active Substance: CETIRIZINE HYDROCHLORIDE
     Route: 065
  70. CETIRIZINE HYDROCHLORIDE [Suspect]
     Active Substance: CETIRIZINE HYDROCHLORIDE
     Route: 065
  71. CETIRIZINE HYDROCHLORIDE [Suspect]
     Active Substance: CETIRIZINE HYDROCHLORIDE
     Route: 042
  72. CETIRIZINE HYDROCHLORIDE [Suspect]
     Active Substance: CETIRIZINE HYDROCHLORIDE
     Indication: Rheumatoid arthritis
     Route: 065
  73. CETIRIZINE HYDROCHLORIDE [Suspect]
     Active Substance: CETIRIZINE HYDROCHLORIDE
     Route: 065
  74. CETIRIZINE HYDROCHLORIDE AND PSEUDOEPHEDRINE HYDROCHLORIDE [Suspect]
     Active Substance: CETIRIZINE HYDROCHLORIDE\PSEUDOEPHEDRINE HYDROCHLORIDE
     Indication: Rheumatoid arthritis
     Route: 065
  75. CETRIMIDE [Suspect]
     Active Substance: CETRIMIDE
     Indication: Product used for unknown indication
     Route: 065
  76. CHLORHEXIDINE [Suspect]
     Active Substance: CHLORHEXIDINE
     Route: 002
  77. CHLORHEXIDINE [Suspect]
     Active Substance: CHLORHEXIDINE
     Route: 061
  78. CHLORHEXIDINE [Suspect]
     Active Substance: CHLORHEXIDINE
     Indication: Product used for unknown indication
     Route: 065
  79. CIMZIA [Suspect]
     Active Substance: CERTOLIZUMAB PEGOL
     Indication: Psoriasis
     Dosage: 1 DOSAGE FORM, Q24H
     Route: 058
  80. CIMZIA [Suspect]
     Active Substance: CERTOLIZUMAB PEGOL
     Indication: Rheumatoid arthritis
     Route: 058
  81. CIMZIA [Suspect]
     Active Substance: CERTOLIZUMAB PEGOL
     Route: 058
  82. CIMZIA [Suspect]
     Active Substance: CERTOLIZUMAB PEGOL
     Route: 058
  83. CIMZIA [Suspect]
     Active Substance: CERTOLIZUMAB PEGOL
     Route: 065
  84. CORTISONE [Suspect]
     Active Substance: CORTISONE
     Route: 061
  85. CORTISONE [Suspect]
     Active Substance: CORTISONE
     Route: 061
  86. CORTISONE [Suspect]
     Active Substance: CORTISONE
     Route: 061
  87. CORTISONE [Suspect]
     Active Substance: CORTISONE
     Route: 061
  88. CORTISONE [Suspect]
     Active Substance: CORTISONE
     Route: 061
  89. CORTISONE [Suspect]
     Active Substance: CORTISONE
     Route: 061
  90. CORTISONE [Suspect]
     Active Substance: CORTISONE
     Route: 061
  91. CORTISONE [Suspect]
     Active Substance: CORTISONE
     Route: 061
  92. CORTISONE [Suspect]
     Active Substance: CORTISONE
     Route: 065
  93. CORTISONE [Suspect]
     Active Substance: CORTISONE
     Route: 065
  94. CORTISONE [Suspect]
     Active Substance: CORTISONE
     Route: 065
  95. CORTISONE [Suspect]
     Active Substance: CORTISONE
     Route: 065
  96. CORTISONE [Suspect]
     Active Substance: CORTISONE
     Route: 065
  97. CORTISONE [Suspect]
     Active Substance: CORTISONE
     Route: 065
  98. CORTISONE [Suspect]
     Active Substance: CORTISONE
     Route: 003
  99. CORTISONE [Suspect]
     Active Substance: CORTISONE
     Route: 048
  100. CORTISONE [Suspect]
     Active Substance: CORTISONE
     Route: 058
  101. CORTISONE [Suspect]
     Active Substance: CORTISONE
     Route: 058
  102. CORTISONE [Suspect]
     Active Substance: CORTISONE
     Route: 061
  103. CORTISONE [Suspect]
     Active Substance: CORTISONE
     Indication: Rheumatoid arthritis
     Route: 065
  104. CORTISONE [Suspect]
     Active Substance: CORTISONE
     Route: 065
  105. CORTISONE ACETATE [Suspect]
     Active Substance: CORTISONE ACETATE
     Route: 050
  106. CORTISONE ACETATE [Suspect]
     Active Substance: CORTISONE ACETATE
     Dosage: 25 MG, QD (TOPICAL)
     Route: 050
  107. CORTISONE ACETATE [Suspect]
     Active Substance: CORTISONE ACETATE
     Route: 065
  108. CORTISONE ACETATE [Suspect]
     Active Substance: CORTISONE ACETATE
     Route: 065
  109. CORTISONE ACETATE [Suspect]
     Active Substance: CORTISONE ACETATE
     Route: 065
  110. CORTISONE ACETATE [Suspect]
     Active Substance: CORTISONE ACETATE
     Route: 065
  111. CORTISONE ACETATE [Suspect]
     Active Substance: CORTISONE ACETATE
     Route: 065
  112. CORTISONE ACETATE [Suspect]
     Active Substance: CORTISONE ACETATE
     Indication: Rheumatoid arthritis
     Route: 065
  113. CORTISONE ACETATE [Suspect]
     Active Substance: CORTISONE ACETATE
     Route: 050
  114. CORTISONE ACETATE [Suspect]
     Active Substance: CORTISONE ACETATE
     Route: 050
  115. CORTISONE ACETATE [Suspect]
     Active Substance: CORTISONE ACETATE
     Route: 050
  116. CORTISONE ACETATE [Suspect]
     Active Substance: CORTISONE ACETATE
     Route: 050
  117. CORTISONE ACETATE [Suspect]
     Active Substance: CORTISONE ACETATE
     Route: 050
  118. CORTISONE ACETATE [Suspect]
     Active Substance: CORTISONE ACETATE
     Route: 050
  119. CORTISONE ACETATE [Suspect]
     Active Substance: CORTISONE ACETATE
     Route: 050
  120. CORTISONE ACETATE [Suspect]
     Active Substance: CORTISONE ACETATE
     Route: 003
  121. CORTISONE ACETATE [Suspect]
     Active Substance: CORTISONE ACETATE
     Route: 058
  122. CORTISONE ACETATE [Suspect]
     Active Substance: CORTISONE ACETATE
     Route: 058
  123. CORTISONE ACETATE [Suspect]
     Active Substance: CORTISONE ACETATE
     Route: 065
  124. CORTISONE ACETATE [Suspect]
     Active Substance: CORTISONE ACETATE
     Route: 065
  125. CORTISONE ACETATE [Suspect]
     Active Substance: CORTISONE ACETATE
     Route: 065
  126. CORTISONE ACETATE [Suspect]
     Active Substance: CORTISONE ACETATE
     Route: 065
  127. CORTISONE ACETATE [Suspect]
     Active Substance: CORTISONE ACETATE
     Route: 065
  128. CORTISONE ACETATE [Suspect]
     Active Substance: CORTISONE ACETATE
     Route: 048
  129. CORTISONE ACETATE [Suspect]
     Active Substance: CORTISONE ACETATE
     Route: 048
  130. CORTISONE ACETATE [Suspect]
     Active Substance: CORTISONE ACETATE
     Route: 048
  131. CORTISONE ACETATE [Suspect]
     Active Substance: CORTISONE ACETATE
     Route: 048
  132. CORTISONE ACETATE [Suspect]
     Active Substance: CORTISONE ACETATE
     Route: 058
  133. CORTISONE ACETATE [Suspect]
     Active Substance: CORTISONE ACETATE
     Route: 050
  134. CORTISONE ACETATE [Suspect]
     Active Substance: CORTISONE ACETATE
     Route: 050
  135. CORTISONE ACETATE [Suspect]
     Active Substance: CORTISONE ACETATE
     Route: 050
  136. CORTISONE ACETATE [Suspect]
     Active Substance: CORTISONE ACETATE
     Route: 050
  137. CORTISONE ACETATE [Suspect]
     Active Substance: CORTISONE ACETATE
     Route: 050
  138. CORTISONE ACETATE [Suspect]
     Active Substance: CORTISONE ACETATE
     Route: 050
  139. CORTISONE ACETATE [Suspect]
     Active Substance: CORTISONE ACETATE
     Route: 050
  140. COSENTYX [Suspect]
     Active Substance: SECUKINUMAB
     Route: 042
  141. COSENTYX [Suspect]
     Active Substance: SECUKINUMAB
     Indication: Psoriatic arthropathy
     Route: 065
  142. CYCLOBENZAPRINE [Suspect]
     Active Substance: CYCLOBENZAPRINE
     Indication: Product used for unknown indication
     Dosage: 1 DF, QD
     Route: 048
  143. DECADRON (DEXAMETHASONE SODIUM PHOSPHATE) [Suspect]
     Active Substance: DEXAMETHASONE SODIUM PHOSPHATE
     Indication: Rheumatoid arthritis
     Route: 048
  144. DECADRON (DEXAMETHASONE SODIUM PHOSPHATE) [Suspect]
     Active Substance: DEXAMETHASONE SODIUM PHOSPHATE
     Route: 065
  145. DICLOFENAC [Suspect]
     Active Substance: DICLOFENAC
     Indication: Product used for unknown indication
     Route: 065
  146. DICLOFENAC POTASSIUM [Suspect]
     Active Substance: DICLOFENAC POTASSIUM
     Dosage: 50 MG, QD
     Route: 065
  147. DICLOFENAC POTASSIUM [Suspect]
     Active Substance: DICLOFENAC POTASSIUM
     Route: 047
  148. DICLOFENAC POTASSIUM [Suspect]
     Active Substance: DICLOFENAC POTASSIUM
     Route: 065
  149. DICLOFENAC POTASSIUM [Suspect]
     Active Substance: DICLOFENAC POTASSIUM
     Indication: Product used for unknown indication
     Route: 065
  150. DICLOFENAC POTASSIUM [Suspect]
     Active Substance: DICLOFENAC POTASSIUM
     Route: 065
  151. DICLOFENAC POTASSIUM [Suspect]
     Active Substance: DICLOFENAC POTASSIUM
     Route: 065
  152. DICLOFENAC POTASSIUM [Suspect]
     Active Substance: DICLOFENAC POTASSIUM
     Route: 065
  153. DICLOFENAC POTASSIUM [Suspect]
     Active Substance: DICLOFENAC POTASSIUM
     Route: 065
  154. DICLOFENAC POTASSIUM [Suspect]
     Active Substance: DICLOFENAC POTASSIUM
     Route: 065
  155. DICLOFENAC POTASSIUM [Suspect]
     Active Substance: DICLOFENAC POTASSIUM
     Route: 065
  156. DICLOFENAC POTASSIUM [Suspect]
     Active Substance: DICLOFENAC POTASSIUM
     Route: 065
  157. DICLOFENAC SODIUM [Suspect]
     Active Substance: DICLOFENAC SODIUM
     Indication: Product used for unknown indication
     Route: 065
  158. DICLOFENAC SODIUM [Suspect]
     Active Substance: DICLOFENAC SODIUM
     Route: 065
  159. DICLOFENAC SODIUM [Suspect]
     Active Substance: DICLOFENAC SODIUM
     Route: 065
  160. DILTIAZEM HYDROCHLORIDE [Suspect]
     Active Substance: DILTIAZEM HYDROCHLORIDE
     Indication: Product used for unknown indication
     Route: 002
  161. DESOXIMETASONE [Suspect]
     Active Substance: DESOXIMETASONE
     Dosage: 25 MG, QW
     Route: 048
  162. DESOXIMETASONE [Suspect]
     Active Substance: DESOXIMETASONE
     Indication: Rheumatoid arthritis
     Route: 048
  163. DESOXIMETASONE [Suspect]
     Active Substance: DESOXIMETASONE
     Route: 058
  164. DILTIAZEM HYDROCHLORIDE [Suspect]
     Active Substance: DILTIAZEM HYDROCHLORIDE
     Indication: Product used for unknown indication
     Route: 002
  165. DOXYCYCLINE [Suspect]
     Active Substance: DOXYCYCLINE
     Indication: Product used for unknown indication
     Route: 065
  166. ERELZI [Suspect]
     Active Substance: ETANERCEPT-SZZS
     Dosage: 12.5 MG, QW
     Route: 065
  167. ERELZI [Suspect]
     Active Substance: ETANERCEPT-SZZS
     Route: 065
  168. ERELZI [Suspect]
     Active Substance: ETANERCEPT-SZZS
     Dosage: 20 MG, QW
     Route: 065
  169. ERELZI [Suspect]
     Active Substance: ETANERCEPT-SZZS
     Route: 065
  170. ERELZI [Suspect]
     Active Substance: ETANERCEPT-SZZS
     Dosage: 25 MG, QW
     Route: 065
  171. ERELZI [Suspect]
     Active Substance: ETANERCEPT-SZZS
     Route: 065
  172. ERELZI [Suspect]
     Active Substance: ETANERCEPT-SZZS
     Route: 065
  173. ERELZI [Suspect]
     Active Substance: ETANERCEPT-SZZS
     Route: 065
  174. ERELZI [Suspect]
     Active Substance: ETANERCEPT-SZZS
     Route: 065
  175. ERELZI [Suspect]
     Active Substance: ETANERCEPT-SZZS
     Route: 065
  176. ERELZI [Suspect]
     Active Substance: ETANERCEPT-SZZS
     Route: 065
  177. ERELZI [Suspect]
     Active Substance: ETANERCEPT-SZZS
     Dosage: 50 MG, QW
     Route: 065
  178. ERELZI [Suspect]
     Active Substance: ETANERCEPT-SZZS
     Dosage: 50 MG, QW
     Route: 065
  179. ERELZI [Suspect]
     Active Substance: ETANERCEPT-SZZS
     Dosage: 50 MG, QW
     Route: 065
  180. ERELZI [Suspect]
     Active Substance: ETANERCEPT-SZZS
     Route: 058
  181. ERELZI [Suspect]
     Active Substance: ETANERCEPT-SZZS
     Route: 058
  182. ERELZI [Suspect]
     Active Substance: ETANERCEPT-SZZS
     Route: 065
  183. ERELZI [Suspect]
     Active Substance: ETANERCEPT-SZZS
     Indication: Rheumatoid arthritis
     Route: 058
  184. ERELZI [Suspect]
     Active Substance: ETANERCEPT-SZZS
     Dosage: UNK UNK, QW
     Route: 058
  185. ERELZI [Suspect]
     Active Substance: ETANERCEPT-SZZS
     Route: 059
  186. ERENUMAB [Suspect]
     Active Substance: ERENUMAB
     Indication: Migraine
     Route: 065
  187. FINACEA [Suspect]
     Active Substance: AZELAIC ACID
     Indication: Product used for unknown indication
     Route: 058
  188. FLUMETHASONE PIVALATE [Suspect]
     Active Substance: FLUMETHASONE PIVALATE
     Indication: Rheumatoid arthritis
     Route: 058
  189. FLUMETHASONE PIVALATE [Suspect]
     Active Substance: FLUMETHASONE PIVALATE
     Route: 058
  190. FLUMETHASONE PIVALATE [Suspect]
     Active Substance: FLUMETHASONE PIVALATE
     Route: 065
  191. FOLIC ACID [Suspect]
     Active Substance: FOLIC ACID
     Route: 065
  192. FOLIC ACID [Suspect]
     Active Substance: FOLIC ACID
     Route: 065
  193. FOLIC ACID [Suspect]
     Active Substance: FOLIC ACID
     Route: 048
  194. FOLIC ACID [Suspect]
     Active Substance: FOLIC ACID
     Indication: Rheumatoid arthritis
     Route: 058
  195. FOLIC ACID [Suspect]
     Active Substance: FOLIC ACID
     Route: 065
  196. FOLIC ACID [Suspect]
     Active Substance: FOLIC ACID
     Route: 065
  197. FOLIC ACID [Suspect]
     Active Substance: FOLIC ACID
     Route: 065
  198. FOLIC ACID [Suspect]
     Active Substance: FOLIC ACID
     Route: 065
  199. FOLIC ACID [Suspect]
     Active Substance: FOLIC ACID
     Route: 065
  200. FOLIC ACID [Suspect]
     Active Substance: FOLIC ACID
     Route: 048
  201. FOLIC ACID [Suspect]
     Active Substance: FOLIC ACID
     Route: 048
  202. FOLIC ACID [Suspect]
     Active Substance: FOLIC ACID
     Route: 065
  203. FOLIC ACID [Suspect]
     Active Substance: FOLIC ACID
     Route: 065
  204. FOLIC ACID [Suspect]
     Active Substance: FOLIC ACID
     Dosage: 5 MG, QD
     Route: 065
  205. FOLIC ACID [Suspect]
     Active Substance: FOLIC ACID
     Route: 065
  206. FOLIC ACID [Suspect]
     Active Substance: FOLIC ACID
     Route: 065
  207. FOLIC ACID [Suspect]
     Active Substance: FOLIC ACID
     Route: 065
  208. FOLIC ACID [Suspect]
     Active Substance: FOLIC ACID
     Route: 065
  209. FOLIC ACID [Suspect]
     Active Substance: FOLIC ACID
     Route: 065
  210. FOLIC ACID [Suspect]
     Active Substance: FOLIC ACID
     Route: 065
  211. FOLIC ACID [Suspect]
     Active Substance: FOLIC ACID
     Route: 065
  212. FOLIC ACID [Suspect]
     Active Substance: FOLIC ACID
     Route: 048
  213. FOLIC ACID [Suspect]
     Active Substance: FOLIC ACID
     Route: 065
  214. FOLIC ACID [Suspect]
     Active Substance: FOLIC ACID
     Route: 065
  215. FOLIC ACID [Suspect]
     Active Substance: FOLIC ACID
     Route: 058
  216. FOLIC ACID [Suspect]
     Active Substance: FOLIC ACID
     Route: 065
  217. FOLIC ACID [Suspect]
     Active Substance: FOLIC ACID
     Route: 065
  218. FOSAMAX [Suspect]
     Active Substance: ALENDRONATE SODIUM
     Route: 048
  219. FOSAMAX [Suspect]
     Active Substance: ALENDRONATE SODIUM
     Indication: Rheumatoid arthritis
     Route: 065
  220. GOLIMUMAB [Suspect]
     Active Substance: GOLIMUMAB
     Route: 058
  221. GOLIMUMAB [Suspect]
     Active Substance: GOLIMUMAB
     Indication: Rheumatoid arthritis
     Route: 065
  222. GOLIMUMAB [Suspect]
     Active Substance: GOLIMUMAB
     Route: 065
  223. HYRIMOZ [Suspect]
     Active Substance: ADALIMUMAB-ADAZ
     Route: 058
  224. HYRIMOZ [Suspect]
     Active Substance: ADALIMUMAB-ADAZ
     Route: 058
  225. HYRIMOZ [Suspect]
     Active Substance: ADALIMUMAB-ADAZ
     Dosage: 40 MG, QW
     Route: 058
  226. HYRIMOZ [Suspect]
     Active Substance: ADALIMUMAB-ADAZ
     Dosage: 40 MG, Q2W
     Route: 058
  227. HYRIMOZ [Suspect]
     Active Substance: ADALIMUMAB-ADAZ
     Route: 048
  228. HYRIMOZ [Suspect]
     Active Substance: ADALIMUMAB-ADAZ
     Route: 057
  229. HYRIMOZ [Suspect]
     Active Substance: ADALIMUMAB-ADAZ
     Route: 058
  230. HYRIMOZ [Suspect]
     Active Substance: ADALIMUMAB-ADAZ
     Route: 058
  231. HYRIMOZ [Suspect]
     Active Substance: ADALIMUMAB-ADAZ
     Route: 058
  232. HYRIMOZ [Suspect]
     Active Substance: ADALIMUMAB-ADAZ
     Route: 058
  233. HYRIMOZ [Suspect]
     Active Substance: ADALIMUMAB-ADAZ
     Route: 058
  234. HYRIMOZ [Suspect]
     Active Substance: ADALIMUMAB-ADAZ
     Route: 058
  235. HYRIMOZ [Suspect]
     Active Substance: ADALIMUMAB-ADAZ
     Route: 057
  236. HYRIMOZ [Suspect]
     Active Substance: ADALIMUMAB-ADAZ
     Indication: Product used for unknown indication
     Route: 058
  237. HYRIMOZ [Suspect]
     Active Substance: ADALIMUMAB-ADAZ
     Route: 058
  238. HUMIRA [Suspect]
     Active Substance: ADALIMUMAB
     Indication: Psoriatic arthropathy
     Route: 058
  239. HUMIRA [Suspect]
     Active Substance: ADALIMUMAB
     Route: 057
  240. HUMIRA [Suspect]
     Active Substance: ADALIMUMAB
     Route: 058
  241. HUMIRA [Suspect]
     Active Substance: ADALIMUMAB
     Route: 058
  242. HUMIRA [Suspect]
     Active Substance: ADALIMUMAB
     Indication: Rheumatoid arthritis
     Route: 057
  243. HUMIRA [Suspect]
     Active Substance: ADALIMUMAB
     Route: 058
  244. HYDROCORTISONE PROBUTATE [Suspect]
     Active Substance: HYDROCORTISONE PROBUTATE
     Indication: Rheumatoid arthritis
     Route: 065
  245. HYDROCORTISONE ACETATE [Suspect]
     Active Substance: HYDROCORTISONE ACETATE
     Indication: Rheumatoid arthritis
     Route: 058
  246. INFLIXIMAB [Suspect]
     Active Substance: INFLIXIMAB
     Route: 065
  247. INFLIXIMAB [Suspect]
     Active Substance: INFLIXIMAB
     Indication: Rheumatoid arthritis
     Route: 065
  248. INFLIXIMAB [Suspect]
     Active Substance: INFLIXIMAB
     Route: 042
  249. KEVZARA [Suspect]
     Active Substance: SARILUMAB
     Indication: Rheumatoid arthritis
     Route: 065
  250. KEVZARA [Suspect]
     Active Substance: SARILUMAB
     Route: 065
  251. LEFLUNOMIDE [Suspect]
     Active Substance: LEFLUNOMIDE
     Dosage: 10 MG, QD
     Route: 065
  252. LEFLUNOMIDE [Suspect]
     Active Substance: LEFLUNOMIDE
     Indication: Rheumatoid arthritis
     Dosage: 20 MG QD
     Route: 048
  253. LEFLUNOMIDE [Suspect]
     Active Substance: LEFLUNOMIDE
     Dosage: UNK
     Route: 048
  254. LEFLUNOMIDE [Suspect]
     Active Substance: LEFLUNOMIDE
     Route: 065
  255. LEFLUNOMIDE [Suspect]
     Active Substance: LEFLUNOMIDE
     Route: 048
  256. LEFLUNOMIDE [Suspect]
     Active Substance: LEFLUNOMIDE
     Route: 065
  257. LEVOCETIRIZINE HYDROCHLORIDE [Suspect]
     Active Substance: LEVOCETIRIZINE HYDROCHLORIDE
     Indication: Product used for unknown indication
     Route: 065
  258. METHOTREXATE [Suspect]
     Active Substance: METHOTREXATE
     Route: 048
  259. METHOTREXATE [Suspect]
     Active Substance: METHOTREXATE
     Route: 048
  260. METHOTREXATE [Suspect]
     Active Substance: METHOTREXATE
     Route: 048
  261. METHOTREXATE [Suspect]
     Active Substance: METHOTREXATE
     Dosage: 15 MG, QD
     Route: 048
  262. METHOTREXATE [Suspect]
     Active Substance: METHOTREXATE
     Dosage: 15 MG, QD
     Route: 065
  263. METHOTREXATE [Suspect]
     Active Substance: METHOTREXATE
     Route: 065
  264. METHOTREXATE [Suspect]
     Active Substance: METHOTREXATE
     Route: 048
  265. METHOTREXATE [Suspect]
     Active Substance: METHOTREXATE
     Route: 048
  266. METHOTREXATE [Suspect]
     Active Substance: METHOTREXATE
     Route: 058
  267. METHOTREXATE [Suspect]
     Active Substance: METHOTREXATE
     Dosage: 20 MG, QW
     Route: 065
  268. METHOTREXATE [Suspect]
     Active Substance: METHOTREXATE
     Dosage: 20 MG, QD
     Route: 048
  269. METHOTREXATE [Suspect]
     Active Substance: METHOTREXATE
     Dosage: 20 MG, QD
     Route: 048
  270. METHOTREXATE [Suspect]
     Active Substance: METHOTREXATE
     Route: 048
  271. METHOTREXATE [Suspect]
     Active Substance: METHOTREXATE
     Route: 065
  272. METHOTREXATE [Suspect]
     Active Substance: METHOTREXATE
     Dosage: 25 G, QD
     Route: 013
  273. METHOTREXATE [Suspect]
     Active Substance: METHOTREXATE
     Dosage: 25 G, QD
     Route: 048
  274. METHOTREXATE [Suspect]
     Active Substance: METHOTREXATE
     Dosage: 25 G, QD
     Route: 048
  275. METHOTREXATE [Suspect]
     Active Substance: METHOTREXATE
     Dosage: 25 G, QD
     Route: 048
  276. METHOTREXATE [Suspect]
     Active Substance: METHOTREXATE
     Route: 048
  277. METHOTREXATE [Suspect]
     Active Substance: METHOTREXATE
     Route: 048
  278. METHOTREXATE [Suspect]
     Active Substance: METHOTREXATE
     Dosage: 25 MG, QW
     Route: 013
  279. METHOTREXATE [Suspect]
     Active Substance: METHOTREXATE
     Dosage: 25 MG, QW
     Route: 013
  280. METHOTREXATE [Suspect]
     Active Substance: METHOTREXATE
     Dosage: 25 MG, QW
     Route: 058
  281. METHOTREXATE [Suspect]
     Active Substance: METHOTREXATE
     Dosage: 25 MG, QW
     Route: 058
  282. METHOTREXATE [Suspect]
     Active Substance: METHOTREXATE
     Dosage: 25 MG, QW
     Route: 065
  283. METHOTREXATE [Suspect]
     Active Substance: METHOTREXATE
     Dosage: 25 MG, QW
     Route: 065
  284. METHOTREXATE [Suspect]
     Active Substance: METHOTREXATE
     Dosage: 25 MG, QD
     Route: 048
  285. METHOTREXATE [Suspect]
     Active Substance: METHOTREXATE
     Dosage: 25 MG, QD
     Route: 058
  286. METHOTREXATE [Suspect]
     Active Substance: METHOTREXATE
     Route: 013
  287. METHOTREXATE [Suspect]
     Active Substance: METHOTREXATE
     Route: 048
  288. METHOTREXATE [Suspect]
     Active Substance: METHOTREXATE
     Route: 048
  289. METHOTREXATE [Suspect]
     Active Substance: METHOTREXATE
     Route: 058
  290. METHOTREXATE [Suspect]
     Active Substance: METHOTREXATE
     Route: 065
  291. METHOTREXATE [Suspect]
     Active Substance: METHOTREXATE
     Route: 065
  292. METHOTREXATE [Suspect]
     Active Substance: METHOTREXATE
     Indication: Rheumatoid arthritis
     Dosage: UNK, QD
     Route: 065
  293. METHOTREXATE [Suspect]
     Active Substance: METHOTREXATE
     Route: 065
  294. METHOTREXATE [Suspect]
     Active Substance: METHOTREXATE
     Route: 065
  295. MYCOPHENOLATE MOFETIL [Suspect]
     Active Substance: MYCOPHENOLATE MOFETIL
     Indication: Product used for unknown indication
     Route: 065
  296. METHOTREXATE SODIUM [Suspect]
     Active Substance: METHOTREXATE SODIUM
     Dosage: 15 MG, QD
     Route: 048
  297. METHOTREXATE SODIUM [Suspect]
     Active Substance: METHOTREXATE SODIUM
     Dosage: 20 MG, QW
     Route: 065
  298. METHOTREXATE SODIUM [Suspect]
     Active Substance: METHOTREXATE SODIUM
     Dosage: 20 MG, QD
     Route: 048
  299. METHOTREXATE SODIUM [Suspect]
     Active Substance: METHOTREXATE SODIUM
     Dosage: 20 MG, QD
     Route: 065
  300. METHOTREXATE SODIUM [Suspect]
     Active Substance: METHOTREXATE SODIUM
     Dosage: 25 MG, QW
     Route: 013
  301. METHOTREXATE SODIUM [Suspect]
     Active Substance: METHOTREXATE SODIUM
     Dosage: 25 MG, QW
     Route: 058
  302. METHOTREXATE SODIUM [Suspect]
     Active Substance: METHOTREXATE SODIUM
     Dosage: 25 MG, QW
     Route: 058
  303. METHOTREXATE SODIUM [Suspect]
     Active Substance: METHOTREXATE SODIUM
     Dosage: 25 MG, QD
     Route: 048
  304. METHOTREXATE SODIUM [Suspect]
     Active Substance: METHOTREXATE SODIUM
     Indication: Rheumatoid arthritis
     Route: 065
  305. NAPROXEN [Suspect]
     Active Substance: NAPROXEN
     Indication: Rheumatoid arthritis
     Route: 065
  306. NEOMYCIN [Suspect]
     Active Substance: NEOMYCIN
     Indication: Product used for unknown indication
     Route: 065
  307. NICOTINAMIDE [Suspect]
     Active Substance: NIACINAMIDE
     Indication: Product used for unknown indication
     Route: 065
  308. OXYCODONE [Suspect]
     Active Substance: OXYCODONE
     Indication: Rheumatoid arthritis
     Route: 065
  309. ORENCIA [Suspect]
     Active Substance: ABATACEPT
     Indication: Rheumatoid arthritis
     Dosage: 0.5 MG, Q24H
     Route: 065
  310. ORENCIA [Suspect]
     Active Substance: ABATACEPT
     Dosage: 0.5 MG, Q24H
     Route: 065
  311. ORENCIA [Suspect]
     Active Substance: ABATACEPT
     Route: 058
  312. ORENCIA [Suspect]
     Active Substance: ABATACEPT
     Route: 058
  313. ORENCIA [Suspect]
     Active Substance: ABATACEPT
     Route: 058
  314. ORENCIA [Suspect]
     Active Substance: ABATACEPT
     Route: 058
  315. ORENCIA [Suspect]
     Active Substance: ABATACEPT
     Route: 058
  316. ORENCIA [Suspect]
     Active Substance: ABATACEPT
     Dosage: 5 MG, QD
     Route: 065
  317. ORENCIA [Suspect]
     Active Substance: ABATACEPT
     Route: 065
  318. ORENCIA [Suspect]
     Active Substance: ABATACEPT
     Route: 065
  319. ORENCIA [Suspect]
     Active Substance: ABATACEPT
     Route: 058
  320. ORENCIA [Suspect]
     Active Substance: ABATACEPT
     Route: 041
  321. ORENCIA [Suspect]
     Active Substance: ABATACEPT
     Route: 042
  322. ORENCIA [Suspect]
     Active Substance: ABATACEPT
     Route: 042
  323. ORENCIA [Suspect]
     Active Substance: ABATACEPT
     Route: 058
  324. ORENCIA [Suspect]
     Active Substance: ABATACEPT
     Route: 058
  325. ORENCIA [Suspect]
     Active Substance: ABATACEPT
     Route: 065
  326. ORENCIA [Suspect]
     Active Substance: ABATACEPT
     Route: 067
  327. OXYCODONE TEREPHTHALATE [Suspect]
     Active Substance: OXYCODONE TEREPHTHALATE
     Indication: Product used for unknown indication
     Route: 065
  328. PERIOGARD [Suspect]
     Active Substance: CHLORHEXIDINE GLUCONATE
     Indication: Rheumatoid arthritis
     Route: 002
  329. PHTHALYLSULFATHIAZOLE [Suspect]
     Active Substance: PHTHALYLSULFATHIAZOLE
     Route: 048
  330. PHTHALYLSULFATHIAZOLE [Suspect]
     Active Substance: PHTHALYLSULFATHIAZOLE
     Route: 048
  331. PHTHALYLSULFATHIAZOLE [Suspect]
     Active Substance: PHTHALYLSULFATHIAZOLE
     Dosage: 1000 MG, BID
     Route: 065
  332. PHTHALYLSULFATHIAZOLE [Suspect]
     Active Substance: PHTHALYLSULFATHIAZOLE
     Dosage: 1000 MG, BID
     Route: 065
  333. PHTHALYLSULFATHIAZOLE [Suspect]
     Active Substance: PHTHALYLSULFATHIAZOLE
     Route: 048
  334. PHTHALYLSULFATHIAZOLE [Suspect]
     Active Substance: PHTHALYLSULFATHIAZOLE
     Dosage: 400 MG, QD
     Route: 065
  335. PHTHALYLSULFATHIAZOLE [Suspect]
     Active Substance: PHTHALYLSULFATHIAZOLE
     Route: 048
  336. PHTHALYLSULFATHIAZOLE [Suspect]
     Active Substance: PHTHALYLSULFATHIAZOLE
     Route: 065
  337. PHTHALYLSULFATHIAZOLE [Suspect]
     Active Substance: PHTHALYLSULFATHIAZOLE
     Route: 016
  338. PHTHALYLSULFATHIAZOLE [Suspect]
     Active Substance: PHTHALYLSULFATHIAZOLE
     Route: 016
  339. PHTHALYLSULFATHIAZOLE [Suspect]
     Active Substance: PHTHALYLSULFATHIAZOLE
     Route: 042
  340. PHTHALYLSULFATHIAZOLE [Suspect]
     Active Substance: PHTHALYLSULFATHIAZOLE
     Route: 042
  341. PHTHALYLSULFATHIAZOLE [Suspect]
     Active Substance: PHTHALYLSULFATHIAZOLE
     Route: 042
  342. PHTHALYLSULFATHIAZOLE [Suspect]
     Active Substance: PHTHALYLSULFATHIAZOLE
     Route: 058
  343. PHTHALYLSULFATHIAZOLE [Suspect]
     Active Substance: PHTHALYLSULFATHIAZOLE
     Route: 058
  344. PHTHALYLSULFATHIAZOLE [Suspect]
     Active Substance: PHTHALYLSULFATHIAZOLE
     Indication: Rheumatoid arthritis
     Route: 065
  345. PHTHALYLSULFATHIAZOLE [Suspect]
     Active Substance: PHTHALYLSULFATHIAZOLE
     Route: 065
  346. PHTHALYLSULFATHIAZOLE [Suspect]
     Active Substance: PHTHALYLSULFATHIAZOLE
     Route: 065
  347. PHTHALYLSULFATHIAZOLE [Suspect]
     Active Substance: PHTHALYLSULFATHIAZOLE
     Route: 065
  348. PHTHALYLSULFATHIAZOLE [Suspect]
     Active Substance: PHTHALYLSULFATHIAZOLE
     Route: 048
  349. PLAQUENIL [Suspect]
     Active Substance: HYDROXYCHLOROQUINE SULFATE
     Dosage: 400 MG, QD
     Route: 048
  350. PLAQUENIL [Suspect]
     Active Substance: HYDROXYCHLOROQUINE SULFATE
     Dosage: 400 MG, QD
     Route: 048
  351. PLAQUENIL [Suspect]
     Active Substance: HYDROXYCHLOROQUINE SULFATE
     Route: 048
  352. PLAQUENIL [Suspect]
     Active Substance: HYDROXYCHLOROQUINE SULFATE
     Indication: Rheumatoid arthritis
     Route: 065
  353. PLAQUENIL [Suspect]
     Active Substance: HYDROXYCHLOROQUINE SULFATE
     Route: 065
  354. PLAQUENIL [Suspect]
     Active Substance: HYDROXYCHLOROQUINE SULFATE
     Route: 065
  355. PLAQUENIL [Suspect]
     Active Substance: HYDROXYCHLOROQUINE SULFATE
     Route: 065
  356. PSEUDOEPHEDRINE HYDROCHLORIDE [Suspect]
     Active Substance: PSEUDOEPHEDRINE HYDROCHLORIDE
     Route: 065
  357. PSEUDOEPHEDRINE HYDROCHLORIDE [Suspect]
     Active Substance: PSEUDOEPHEDRINE HYDROCHLORIDE
     Indication: Rheumatoid arthritis
     Route: 065
  358. PSEUDOEPHEDRINE HYDROCHLORIDE [Suspect]
     Active Substance: PSEUDOEPHEDRINE HYDROCHLORIDE
     Route: 065
  359. RITUXIMAB [Suspect]
     Active Substance: RITUXIMAB
     Dosage: 1 MG, QD
     Route: 042
  360. RITUXIMAB [Suspect]
     Active Substance: RITUXIMAB
     Dosage: 1000 MG, QD
     Route: 042
  361. RITUXIMAB [Suspect]
     Active Substance: RITUXIMAB
     Route: 042
  362. RITUXIMAB [Suspect]
     Active Substance: RITUXIMAB
     Route: 065
  363. RITUXIMAB [Suspect]
     Active Substance: RITUXIMAB
     Route: 042
  364. RITUXIMAB [Suspect]
     Active Substance: RITUXIMAB
     Route: 042
  365. RITUXIMAB [Suspect]
     Active Substance: RITUXIMAB
     Route: 042
  366. RITUXIMAB [Suspect]
     Active Substance: RITUXIMAB
     Route: 043
  367. RITUXIMAB [Suspect]
     Active Substance: RITUXIMAB
     Indication: Rheumatoid arthritis
     Route: 058
  368. RITUXIMAB [Suspect]
     Active Substance: RITUXIMAB
     Route: 058
  369. CETIRIZINE HYDROCHLORIDE\PSEUDOEPHEDRINE HYDROCHLORIDE [Suspect]
     Active Substance: CETIRIZINE HYDROCHLORIDE\PSEUDOEPHEDRINE HYDROCHLORIDE
     Dosage: 10 MG, QD, TABLET EXTENDED RELEASE
     Route: 048
  370. CETIRIZINE HYDROCHLORIDE\PSEUDOEPHEDRINE HYDROCHLORIDE [Suspect]
     Active Substance: CETIRIZINE HYDROCHLORIDE\PSEUDOEPHEDRINE HYDROCHLORIDE
     Indication: Off label use
     Route: 065
  371. CETIRIZINE HYDROCHLORIDE\PSEUDOEPHEDRINE HYDROCHLORIDE [Suspect]
     Active Substance: CETIRIZINE HYDROCHLORIDE\PSEUDOEPHEDRINE HYDROCHLORIDE
     Route: 065
  372. CETIRIZINE HYDROCHLORIDE\PSEUDOEPHEDRINE HYDROCHLORIDE [Suspect]
     Active Substance: CETIRIZINE HYDROCHLORIDE\PSEUDOEPHEDRINE HYDROCHLORIDE
     Indication: Rheumatoid arthritis
     Route: 065
  373. RISEDRONIC ACID [Suspect]
     Active Substance: RISEDRONIC ACID
     Indication: Product used for unknown indication
     Route: 065
  374. SULFASALAZINE [Suspect]
     Active Substance: SULFASALAZINE
     Indication: Rheumatoid arthritis
     Route: 048
  375. STELARA [Suspect]
     Active Substance: USTEKINUMAB
     Indication: Product used for unknown indication
     Route: 058
  376. STELARA [Suspect]
     Active Substance: USTEKINUMAB
     Route: 065
  377. SULFASALAZINE [Suspect]
     Active Substance: SULFASALAZINE
     Dosage: 1 G, QD
     Route: 048
  378. SULFASALAZINE [Suspect]
     Active Substance: SULFASALAZINE
     Route: 048
  379. SULFASALAZINE [Suspect]
     Active Substance: SULFASALAZINE
     Dosage: 1000 MG, QD
     Route: 048
  380. SULFASALAZINE [Suspect]
     Active Substance: SULFASALAZINE
     Dosage: 2 G, QD
     Route: 048
  381. SULFASALAZINE [Suspect]
     Active Substance: SULFASALAZINE
     Indication: Rheumatoid arthritis
     Dosage: 250 MG, QD
     Route: 065
  382. SULFASALAZINE [Suspect]
     Active Substance: SULFASALAZINE
     Dosage: 500 MG, QD
     Route: 048
  383. SULFASALAZINE [Suspect]
     Active Substance: SULFASALAZINE
     Dosage: 500 MG, QD
     Route: 065
  384. SULFASALAZINE [Suspect]
     Active Substance: SULFASALAZINE
     Dosage: 500 MG, QD
     Route: 065
  385. SULFASALAZINE [Suspect]
     Active Substance: SULFASALAZINE
     Route: 048
  386. SULFASALAZINE [Suspect]
     Active Substance: SULFASALAZINE
     Route: 065
  387. TOCILIZUMAB [Suspect]
     Active Substance: TOCILIZUMAB
     Route: 065
  388. TOCILIZUMAB [Suspect]
     Active Substance: TOCILIZUMAB
     Route: 065
  389. TOCILIZUMAB [Suspect]
     Active Substance: TOCILIZUMAB
     Route: 005
  390. TOCILIZUMAB [Suspect]
     Active Substance: TOCILIZUMAB
     Route: 042
  391. TOCILIZUMAB [Suspect]
     Active Substance: TOCILIZUMAB
     Indication: Product used for unknown indication
     Route: 058
  392. TOCILIZUMAB [Suspect]
     Active Substance: TOCILIZUMAB
     Route: 058
  393. TOCILIZUMAB [Suspect]
     Active Substance: TOCILIZUMAB
     Route: 065
  394. TOFACITINIB [Suspect]
     Active Substance: TOFACITINIB
     Dosage: 5 MG, QW
     Route: 048
  395. TOFACITINIB [Suspect]
     Active Substance: TOFACITINIB
     Indication: Psoriatic arthropathy
     Dosage: 5 MG (1 EVERY 5 DAYS)
     Route: 065
  396. TOFACITINIB [Suspect]
     Active Substance: TOFACITINIB
     Indication: Rheumatoid arthritis
     Dosage: 5 MG, QD
     Route: 065
  397. TOFACITINIB [Suspect]
     Active Substance: TOFACITINIB
     Dosage: 5 MG, QD
     Route: 065
  398. TOFACITINIB [Suspect]
     Active Substance: TOFACITINIB
     Dosage: 5 MG, QD
     Route: 065
  399. TOFACITINIB [Suspect]
     Active Substance: TOFACITINIB
     Route: 048
  400. TOFACITINIB CITRATE [Suspect]
     Active Substance: TOFACITINIB CITRATE
     Dosage: 5 MG, QW
     Route: 048
  401. TOFACITINIB CITRATE [Suspect]
     Active Substance: TOFACITINIB CITRATE
     Indication: Rheumatoid arthritis
     Dosage: 5 MG, QD
     Route: 065
  402. TOFACITINIB CITRATE [Suspect]
     Active Substance: TOFACITINIB CITRATE
     Dosage: 5 MG, QD
     Route: 065
  403. TOFACITINIB CITRATE [Suspect]
     Active Substance: TOFACITINIB CITRATE
     Route: 048
  404. TOFACITINIB CITRATE [Suspect]
     Active Substance: TOFACITINIB CITRATE
     Route: 065
  405. TOFACITINIB CITRATE [Suspect]
     Active Substance: TOFACITINIB CITRATE
     Indication: Psoriatic arthropathy
     Route: 065
  406. TOPICORT [Suspect]
     Active Substance: DESOXIMETASONE
     Route: 003
  407. TOPICORT [Suspect]
     Active Substance: DESOXIMETASONE
     Indication: Rheumatoid arthritis
     Route: 048
  408. TOPICORT [Suspect]
     Active Substance: DESOXIMETASONE
     Route: 058
  409. TRIAMCINOLONE [Suspect]
     Active Substance: TRIAMCINOLONE
     Route: 014
  410. TRIAMCINOLONE [Suspect]
     Active Substance: TRIAMCINOLONE
     Indication: Product used for unknown indication
     Route: 065
  411. TUMS [Suspect]
     Active Substance: CALCIUM CARBONATE
     Indication: Product used for unknown indication
     Route: 065
  412. USTEKINUMAB [Suspect]
     Active Substance: USTEKINUMAB
     Route: 042
  413. USTEKINUMAB [Suspect]
     Active Substance: USTEKINUMAB
     Indication: Product used for unknown indication
     Route: 058
  414. VOLTARENE (DICLOFENAC SODIUM) [Suspect]
     Active Substance: DICLOFENAC SODIUM
     Indication: Product used for unknown indication
     Route: 065
  415. ATIVAN [Concomitant]
     Active Substance: LORAZEPAM
     Indication: Anxiety
     Route: 065
  416. CAFFEINE [Concomitant]
     Active Substance: CAFFEINE
     Indication: Product used for unknown indication
     Route: 065
  417. CALCIUM [Concomitant]
     Active Substance: CALCIUM
     Indication: Product used for unknown indication
     Route: 065
  418. CALCIUM GLUBIONATE [Concomitant]
     Active Substance: CALCIUM GLUBIONATE
     Indication: Product used for unknown indication
     Route: 065
  419. CHOLECALCIFEROL [Concomitant]
     Active Substance: CHOLECALCIFEROL
     Indication: Product used for unknown indication
     Route: 065
  420. ACETAMINOPHEN\CODEINE PHOSPHATE [Concomitant]
     Active Substance: ACETAMINOPHEN\CODEINE PHOSPHATE
     Indication: Product used for unknown indication
     Route: 065
  421. ELBASVIR [Concomitant]
     Active Substance: ELBASVIR
     Indication: Product used for unknown indication
     Route: 065
  422. GLUCOSAMINE [Concomitant]
     Active Substance: GLUCOSAMINE
     Indication: Product used for unknown indication
     Route: 065
  423. IBUPROFEN [Concomitant]
     Active Substance: IBUPROFEN
     Indication: Product used for unknown indication
     Route: 065
  424. LANSOPRAZOLE [Concomitant]
     Active Substance: LANSOPRAZOLE
     Indication: Product used for unknown indication
     Route: 065
  425. LEVOTHYROXINE SODIUM [Concomitant]
     Active Substance: LEVOTHYROXINE SODIUM
     Indication: Product used for unknown indication
     Route: 065
  426. LISINOPRIL [Concomitant]
     Active Substance: LISINOPRIL
     Indication: Product used for unknown indication
     Route: 065
  427. LORAZEPAM [Concomitant]
     Active Substance: LORAZEPAM
     Indication: Product used for unknown indication
     Route: 065
  428. MAGNESIUM [Concomitant]
     Active Substance: MAGNESIUM
     Indication: Product used for unknown indication
     Route: 065
  429. MELOXICAM [Concomitant]
     Active Substance: MELOXICAM
     Indication: Product used for unknown indication
     Route: 065
  430. PANTOPRAZOLE SODIUM [Concomitant]
     Active Substance: PANTOPRAZOLE SODIUM
     Indication: Product used for unknown indication
     Route: 065
  431. PIROXICAM [Concomitant]
     Active Substance: PIROXICAM
     Indication: Product used for unknown indication
     Route: 065
  432. PREDNISOLONE [Concomitant]
     Active Substance: PREDNISOLONE
     Indication: Product used for unknown indication
     Route: 065
  433. QUETIAPINE FUMARATE [Concomitant]
     Active Substance: QUETIAPINE FUMARATE
     Indication: Product used for unknown indication
     Route: 065
  434. RAMIPRIL [Concomitant]
     Active Substance: RAMIPRIL
     Indication: Product used for unknown indication
     Route: 065
  435. RISEDRONATE SODIUM [Concomitant]
     Active Substance: RISEDRONATE SODIUM
     Indication: Product used for unknown indication
     Route: 065
  436. SULFASALAZINE [Concomitant]
     Active Substance: SULFASALAZINE
     Indication: Product used for unknown indication
     Route: 065
  437. FISH OIL [Concomitant]
     Active Substance: FISH OIL
     Indication: Product used for unknown indication
     Route: 065
  438. VITAMIN B12 [Concomitant]
     Active Substance: CYANOCOBALAMIN
     Indication: Product used for unknown indication
     Route: 065
  439. VITAMIN D3 [Concomitant]
     Active Substance: CHOLECALCIFEROL
     Indication: Product used for unknown indication
     Route: 065

REACTIONS (54)
  - Arthralgia [Fatal]
  - Blister [Fatal]
  - Drug hypersensitivity [Fatal]
  - Drug intolerance [Fatal]
  - Hepatic enzyme increased [Fatal]
  - Hypercholesterolaemia [Fatal]
  - Hypertension [Fatal]
  - Infusion related reaction [Fatal]
  - Muscle spasms [Fatal]
  - Pemphigus [Fatal]
  - Rheumatoid arthritis [Fatal]
  - Synovitis [Fatal]
  - Systemic lupus erythematosus [Fatal]
  - Stomatitis [Fatal]
  - Type 2 diabetes mellitus [Fatal]
  - Urticaria [Fatal]
  - Wheezing [Fatal]
  - Wound infection [Fatal]
  - Diarrhoea [Fatal]
  - Abdominal pain [Fatal]
  - Adrenal insufficiency [Fatal]
  - Adverse drug reaction [Fatal]
  - C-reactive protein abnormal [Fatal]
  - Drug tolerance [Fatal]
  - Fatigue [Fatal]
  - Immunodeficiency [Fatal]
  - Infection [Fatal]
  - Injury [Fatal]
  - Joint destruction [Fatal]
  - Loss of consciousness [Fatal]
  - Polyarthritis [Fatal]
  - Contraindicated product administered [Fatal]
  - Psoriasis [Fatal]
  - Decreased appetite [Fatal]
  - Prescribed overdose [Fatal]
  - Exposure during pregnancy [Fatal]
  - Therapeutic product effect decreased [Fatal]
  - Therapeutic response decreased [Fatal]
  - Drug ineffective [Fatal]
  - Treatment failure [Fatal]
  - Therapy non-responder [Fatal]
  - Intentional product use issue [Fatal]
  - Product use issue [Fatal]
  - Product use in unapproved indication [Fatal]
  - Off label use [Fatal]
  - Hand deformity [Not Recovered/Not Resolved]
  - Leukopenia [Not Recovered/Not Resolved]
  - Hypertransaminasaemia [Not Recovered/Not Resolved]
  - Hypersensitivity [Not Recovered/Not Resolved]
  - Joint swelling [Not Recovered/Not Resolved]
  - Oedema [Not Recovered/Not Resolved]
  - Deep vein thrombosis postoperative [Not Recovered/Not Resolved]
  - Psoriatic arthropathy [Not Recovered/Not Resolved]
  - Maternal exposure during pregnancy [Not Recovered/Not Resolved]
